FAERS Safety Report 18722066 (Version 2)
Quarter: 2025Q2

REPORT INFORMATION
  Report Type: Report from Study
  Country: PL (occurrence: PL)
  Receive Date: 20210111
  Receipt Date: 20250405
  Transmission Date: 20250717
  Serious: Yes (Other)
  Sender: AUROBINDO
  Company Number: PL-ACCORD-212991

PATIENT

DRUGS (1)
  1. IMATINIB [Suspect]
     Active Substance: IMATINIB
     Indication: Acute lymphocytic leukaemia
     Dosage: 300 MILLIGRAM/SQ. METER, ONCE A DAY INTRODUCED ON DAY 15
     Route: 065

REACTIONS (3)
  - Hepatotoxicity [Unknown]
  - Gastrointestinal toxicity [Unknown]
  - Infection [Unknown]
